FAERS Safety Report 6151983-3 (Version None)
Quarter: 2009Q2

REPORT INFORMATION
  Report Type: 
  Country: None (occurrence: None)
  Receive Date: 20090409
  Receipt Date: 20090331
  Transmission Date: 20091009
  Serious: Yes (Death, Life-Threatening, Hospitalization)
  Sender: FDA-Public Use
  Company Number: 167764ISR

PATIENT
  Age: 76 Year
  Sex: Male

DRUGS (2)
  1. WARFARIN SODIUM [Suspect]
     Indication: CEREBROVASCULAR ACCIDENT PROPHYLAXIS
     Dosage: 4 MG (4 MG, 1 IN 1 D) ORAL
     Route: 048
     Dates: start: 20070128, end: 20080128
  2. WARFARIN SODIUM [Suspect]
     Indication: EMBOLISM
     Dosage: 4 MG (4 MG, 1 IN 1 D) ORAL
     Route: 048
     Dates: start: 20070128, end: 20080128

REACTIONS (8)
  - ANAEMIA [None]
  - COAGULATION TEST ABNORMAL [None]
  - GASTROINTESTINAL HAEMORRHAGE [None]
  - HYPOTENSION [None]
  - METASTASIS [None]
  - PNEUMONIA [None]
  - RENAL FAILURE ACUTE [None]
  - SUDDEN DEATH [None]
